FAERS Safety Report 9224605 (Version 3)
Quarter: 2013Q2

REPORT INFORMATION
  Report Type: Spontaneous
  Country: US (occurrence: US)
  Receive Date: 20130411
  Receipt Date: 20130611
  Transmission Date: 20140414
  Serious: Yes (Hospitalization, Other)
  Sender: FDA-Public Use
  Company Number: US-JNJFOC-20130317736

PATIENT
  Age: 59 Year
  Sex: Male
  Weight: 79.38 kg

DRUGS (8)
  1. DURAGESIC [Suspect]
     Indication: PAIN
     Route: 062
     Dates: start: 201101, end: 20111231
  2. DURAGESIC [Suspect]
     Indication: PAIN
     Dosage: NDC 50458-092-05
     Route: 062
     Dates: start: 20120101
  3. PHENERGAN [Suspect]
     Indication: NAUSEA
     Route: 048
     Dates: start: 1991
  4. LIBRAX [Suspect]
     Indication: CROHN^S DISEASE
     Dosage: 2.5/5MG (CLIDINIUM BROMIDE, CHLORDIAZEPOXIDE HCL)
     Route: 048
  5. CYCLOBENZAPRINE [Suspect]
     Indication: MUSCLE SPASMS
     Route: 048
     Dates: start: 20120925, end: 201210
  6. CYCLOBENZAPRINE [Suspect]
     Indication: MUSCLE SPASMS
     Route: 048
     Dates: start: 201210
  7. DIOVAN [Concomitant]
     Indication: BLOOD PRESSURE
     Route: 048
  8. TOPROL XL [Concomitant]
     Indication: BLOOD PRESSURE
     Route: 048

REACTIONS (8)
  - Memory impairment [Not Recovered/Not Resolved]
  - Psychotic disorder [Recovered/Resolved]
  - Abnormal behaviour [Recovered/Resolved]
  - White blood cell count increased [Recovered/Resolved]
  - Restlessness [Recovered/Resolved]
  - Speech disorder [Recovered/Resolved]
  - Drug ineffective [Recovered/Resolved]
  - Muscle spasms [Recovered/Resolved]
